FAERS Safety Report 9422067 (Version 2)
Quarter: 2014Q2

REPORT INFORMATION
  Report Type: Report from Study
  Country: TW (occurrence: TW)
  Receive Date: 20130726
  Receipt Date: 20140402
  Transmission Date: 20141212
  Serious: Yes (Hospitalization)
  Sender: FDA-Public Use
  Company Number: TW-MERCK-1210TWN001039

PATIENT
  Age: 74 Year
  Sex: Male
  Weight: 82 kg

DRUGS (8)
  1. BOCEPREVIR [Suspect]
     Indication: HEPATITIS C
     Dosage: 800 MG, TID
     Route: 048
     Dates: start: 20120611, end: 20120926
  2. PEG-INTRON [Suspect]
     Indication: HEPATITIS C
     Dosage: 120 MICROGRAM/0.5ML, QW, FORUMATION: PEN
     Route: 030
     Dates: start: 20120514, end: 20120926
  3. RIBAVIRIN [Suspect]
     Indication: HEPATITIS C
     Dosage: 600 MG, BID
     Route: 048
     Dates: start: 20120514, end: 20120926
  4. SIGMART [Concomitant]
     Indication: HYPERTENSION
     Dosage: 5 MG, TID
     Route: 048
     Dates: start: 20100225, end: 20120228
  5. HERBESSER [Concomitant]
     Indication: HYPERTENSION
     Dosage: 30 MG, BID
     Route: 048
     Dates: start: 20091125, end: 20120928
  6. XANAX [Concomitant]
     Indication: INSOMNIA
     Dosage: 0.25 MG, QD
     Route: 048
     Dates: start: 20091125, end: 20120928
  7. LERCANIDIPINE [Concomitant]
     Indication: HYPERTENSION
     Dosage: 10 MG, QD
     Route: 048
     Dates: start: 20120625, end: 20120928
  8. BOKEY [Concomitant]
     Indication: PROPHYLAXIS
     Dosage: 100 MG, QD
     Route: 048
     Dates: start: 20120625, end: 20120928

REACTIONS (1)
  - Sepsis [Recovered/Resolved]
